FAERS Safety Report 5562140-3 (Version None)
Quarter: 2007Q4

REPORT INFORMATION
  Report Type: 
  Country: None (occurrence: None)
  Receive Date: 20071215
  Receipt Date: 20061117
  Transmission Date: 20080405
  Serious: No
  Sender: FDA-Public Use
  Company Number: US-AMGEN-US196141

PATIENT
  Sex: Male
  Weight: 81.7 kg

DRUGS (9)
  1. ENBREL [Suspect]
     Indication: ANKYLOSING SPONDYLITIS
     Route: 058
     Dates: start: 20060929
  2. BONIVA [Concomitant]
     Route: 042
     Dates: start: 20061027, end: 20061027
  3. CELEBREX [Concomitant]
     Route: 065
     Dates: start: 20060928
  4. HYDROCODONE BITARTRATE + ACETAMINOPHEN [Concomitant]
     Route: 065
     Dates: start: 20060101
  5. LANSOPRAZOLE [Concomitant]
     Route: 065
     Dates: start: 20060101
  6. METFORMIN HCL [Concomitant]
     Route: 065
  7. ZESTRIL [Concomitant]
  8. ZOCOR [Concomitant]
  9. CORTICOSTEROID NOS [Concomitant]
     Route: 065

REACTIONS (2)
  - BLOOD GLUCOSE INCREASED [None]
  - NAUSEA [None]
